FAERS Safety Report 9189970 (Version 1)
Quarter: 2013Q1

REPORT INFORMATION
  Report Type: Spontaneous
  Country: JP (occurrence: None)
  Receive Date: 20130322
  Receipt Date: 20130322
  Transmission Date: 20140127
  Serious: Yes (Other)
  Sender: FDA-Public Use
  Company Number: 2013-032161

PATIENT
  Age: 73 Year
  Sex: Male

DRUGS (1)
  1. EYLEA (AFLIBERCEPT) SOLUTION FOR INJECTION [Suspect]
     Indication: AGE-RELATED MACULAR DEGENERATION
     Route: 047
     Dates: start: 20130228, end: 20130228

REACTIONS (1)
  - Retinal vasculitis [None]
